FAERS Safety Report 5070410-0 (Version None)
Quarter: 2006Q3

REPORT INFORMATION
  Report Type: 
  Country: None (occurrence: None)
  Receive Date: 20060714
  Receipt Date: 20060414
  Transmission Date: 20061208
  Serious: No
  Sender: FDA-Public Use
  Company Number: 2006SP001689

PATIENT
  Age: 74 Year
  Sex: Male
  Weight: 106.5953 kg

DRUGS (10)
  1. LUNESTA [Suspect]
     Indication: INSOMNIA
     Dosage: SEE IMAGE
     Route: 048
     Dates: start: 20060401
  2. LUNESTA [Suspect]
     Indication: INSOMNIA
     Dosage: SEE IMAGE
     Route: 048
     Dates: start: 20060401
  3. ATORVASTATIN CALCIUM [Concomitant]
  4. AMLODIPINE [Concomitant]
  5. LISINOPRIL [Concomitant]
  6. FUROSEMIDE [Concomitant]
  7. FOLIC ACID [Concomitant]
  8. CILOSTAZOL [Concomitant]
  9. ASPIRIN [Concomitant]
  10. BYETTA [Concomitant]

REACTIONS (3)
  - ABNORMAL DREAMS [None]
  - DRUG INEFFECTIVE [None]
  - MIDDLE INSOMNIA [None]
